FAERS Safety Report 16732116 (Version 3)
Quarter: 2020Q3

REPORT INFORMATION
  Report Type: Spontaneous
  Country: DE (occurrence: DE)
  Receive Date: 20190822
  Receipt Date: 20200102
  Transmission Date: 20201104
  Serious: Yes (Life-Threatening, Hospitalization, Other)
  Sender: FDA-Public Use
  Company Number: DE-BAUSCH-BL-2019-023145

PATIENT
  Age: 68 Year
  Sex: Female
  Weight: 92 kg

DRUGS (39)
  1. RITUXIMAB. [Suspect]
     Active Substance: RITUXIMAB
     Indication: DIFFUSE LARGE B-CELL LYMPHOMA
     Dosage: 3RD CYCLE
     Route: 065
     Dates: start: 20190502, end: 2019
  2. RITUXIMAB. [Suspect]
     Active Substance: RITUXIMAB
     Route: 065
     Dates: start: 201901, end: 201901
  3. PREDNISONE. [Suspect]
     Active Substance: PREDNISONE
     Indication: DIFFUSE LARGE B-CELL LYMPHOMA
     Route: 065
     Dates: start: 201610, end: 201703
  4. POLATUZUMAB VEDOTIN. [Suspect]
     Active Substance: POLATUZUMAB VEDOTIN
     Dosage: 4TH CYCLE
     Route: 065
     Dates: start: 20190910, end: 20190910
  5. POLATUZUMAB VEDOTIN. [Suspect]
     Active Substance: POLATUZUMAB VEDOTIN
     Dosage: 1ST CYCLE
     Route: 065
     Dates: start: 201901, end: 201901
  6. PANTOPRAZOL [Concomitant]
     Active Substance: PANTOPRAZOLE SODIUM
     Indication: PRODUCT USED FOR UNKNOWN INDICATION
     Route: 065
  7. BENDAMUSTINE [Suspect]
     Active Substance: BENDAMUSTINE
     Dosage: 1ST CYCLE
     Route: 065
     Dates: start: 201901, end: 201901
  8. RITUXIMAB. [Suspect]
     Active Substance: RITUXIMAB
     Route: 065
     Dates: start: 20180103, end: 20180117
  9. CISPLATIN. [Suspect]
     Active Substance: CISPLATIN
     Dosage: FIRST CYCLE
     Route: 065
     Dates: start: 20180103, end: 20180117
  10. SALBUTAMOL [Concomitant]
     Active Substance: ALBUTEROL
     Indication: PRODUCT USED FOR UNKNOWN INDICATION
     Dosage: AS REQUIRED
     Route: 065
  11. GABAPENTIN. [Concomitant]
     Active Substance: GABAPENTIN
     Indication: PRODUCT USED FOR UNKNOWN INDICATION
     Route: 065
  12. VOMEX [Concomitant]
     Active Substance: DIMENHYDRINATE
     Indication: PRODUCT USED FOR UNKNOWN INDICATION
     Dosage: AS REQUIRED
     Route: 065
  13. VALSARTAN. [Concomitant]
     Active Substance: VALSARTAN
     Indication: PRODUCT USED FOR UNKNOWN INDICATION
     Route: 065
  14. CYCLOPHOSPHAMIDE. [Suspect]
     Active Substance: CYCLOPHOSPHAMIDE
     Indication: DIFFUSE LARGE B-CELL LYMPHOMA
     Route: 065
     Dates: start: 201610, end: 201703
  15. RITUXIMAB. [Suspect]
     Active Substance: RITUXIMAB
     Route: 065
     Dates: start: 201610, end: 201703
  16. CISPLATIN. [Suspect]
     Active Substance: CISPLATIN
     Indication: DIFFUSE LARGE B-CELL LYMPHOMA
     Dosage: SECOND CYCLE
     Route: 065
     Dates: start: 201801, end: 201802
  17. PREGABALIN. [Concomitant]
     Active Substance: PREGABALIN
     Indication: PRODUCT USED FOR UNKNOWN INDICATION
     Route: 065
  18. BENDAMUSTINE [Suspect]
     Active Substance: BENDAMUSTINE
     Indication: DIFFUSE LARGE B-CELL LYMPHOMA
     Dosage: 2ND CYCLE
     Route: 065
     Dates: start: 20190403, end: 20190403
  19. POLATUZUMAB VEDOTIN. [Suspect]
     Active Substance: POLATUZUMAB VEDOTIN
     Dosage: 2ND CYCLE
     Route: 065
     Dates: start: 20190403, end: 20190403
  20. CYTARABINE. [Suspect]
     Active Substance: CYTARABINE
     Indication: DIFFUSE LARGE B-CELL LYMPHOMA
     Dosage: SECOND CYCLE
     Route: 065
     Dates: start: 201801, end: 201802
  21. METAMIZOL [Concomitant]
     Active Substance: METAMIZOLE SODIUM
     Indication: PRODUCT USED FOR UNKNOWN INDICATION
     Dosage: AS REQUIRED
     Route: 065
  22. EDOXABAN [Concomitant]
     Active Substance: EDOXABAN TOSYLATE
     Indication: PRODUCT USED FOR UNKNOWN INDICATION
     Route: 065
  23. INNOHEP [Concomitant]
     Active Substance: TINZAPARIN SODIUM
     Indication: PRODUCT USED FOR UNKNOWN INDICATION
     Dosage: 16 000 IU/0.8 ML
     Route: 058
  24. DEXAMETHASONE. [Suspect]
     Active Substance: DEXAMETHASONE
     Indication: DIFFUSE LARGE B-CELL LYMPHOMA
     Dosage: SECOND CYCLE
     Route: 065
     Dates: start: 201801, end: 201802
  25. DEXAMETHASONE. [Suspect]
     Active Substance: DEXAMETHASONE
     Dosage: FIRST CYCLE
     Route: 065
     Dates: start: 20180103, end: 20180117
  26. RITUXIMAB. [Suspect]
     Active Substance: RITUXIMAB
     Dosage: 2ND CYCLE
     Route: 065
     Dates: start: 20190403, end: 20190403
  27. RITUXIMAB. [Suspect]
     Active Substance: RITUXIMAB
     Route: 065
     Dates: start: 201801, end: 201802
  28. HYDROXYDAUNORUBICIN [Suspect]
     Active Substance: DOXORUBICIN
     Indication: DIFFUSE LARGE B-CELL LYMPHOMA
     Route: 065
     Dates: start: 201610, end: 201703
  29. OXYCODONE HYDROCHLORIDE. [Concomitant]
     Active Substance: OXYCODONE HYDROCHLORIDE
     Indication: PRODUCT USED FOR UNKNOWN INDICATION
     Route: 065
  30. METOPROLOL SUCCINATE. [Concomitant]
     Active Substance: METOPROLOL SUCCINATE
     Indication: PRODUCT USED FOR UNKNOWN INDICATION
     Route: 065
  31. AMITRIPTYLIN [Concomitant]
     Active Substance: AMITRIPTYLINE
     Indication: PRODUCT USED FOR UNKNOWN INDICATION
     Route: 065
  32. BENDAMUSTINE [Suspect]
     Active Substance: BENDAMUSTINE
     Dosage: 3RD CYCLE
     Route: 065
     Dates: start: 20190502, end: 2019
  33. BENDAMUSTINE [Suspect]
     Active Substance: BENDAMUSTINE
     Dosage: 4TH CYCLE
     Route: 065
     Dates: start: 20190911
  34. RITUXIMAB. [Suspect]
     Active Substance: RITUXIMAB
     Dosage: 4TH CYCLE
     Route: 065
     Dates: start: 20190910, end: 20190910
  35. POLATUZUMAB VEDOTIN. [Suspect]
     Active Substance: POLATUZUMAB VEDOTIN
     Indication: DIFFUSE LARGE B-CELL LYMPHOMA
     Dosage: 3RD CYCLE
     Route: 065
     Dates: start: 20190502, end: 20190502
  36. POLATUZUMAB VEDOTIN. [Suspect]
     Active Substance: POLATUZUMAB VEDOTIN
     Dosage: 5TH CYCLE
     Route: 065
     Dates: start: 20190911, end: 20190911
  37. ONCOVIN [Suspect]
     Active Substance: VINCRISTINE SULFATE
     Indication: DIFFUSE LARGE B-CELL LYMPHOMA
     Route: 065
     Dates: start: 201610, end: 201703
  38. PREGABALIN. [Concomitant]
     Active Substance: PREGABALIN
     Route: 065
  39. AVALOX [Concomitant]
     Active Substance: MOXIFLOXACIN HYDROCHLORIDE
     Indication: PRODUCT USED FOR UNKNOWN INDICATION
     Dates: start: 20190513

REACTIONS (18)
  - Asthenia [Not Recovered/Not Resolved]
  - Decreased appetite [Unknown]
  - Meningioma [Unknown]
  - Neuralgia [Not Recovered/Not Resolved]
  - Urinary tract infection [Unknown]
  - Herpes zoster [Not Recovered/Not Resolved]
  - Diarrhoea [Recovering/Resolving]
  - Adjustment disorder [Unknown]
  - Infection [Unknown]
  - Pneumonia [Recovering/Resolving]
  - General physical health deterioration [Unknown]
  - Dysuria [Recovered/Resolved]
  - Parainfluenzae virus infection [Recovering/Resolving]
  - Pyrexia [Unknown]
  - Nerve injury [Not Recovered/Not Resolved]
  - Diffuse large B-cell lymphoma recurrent [Unknown]
  - Pulmonary embolism [Recovering/Resolving]
  - Otitis media [Recovered/Resolved]

NARRATIVE: CASE EVENT DATE: 201711
